FAERS Safety Report 9649632 (Version 2)
Quarter: 2013Q4

REPORT INFORMATION
  Report Type: Spontaneous
  Country: DE (occurrence: None)
  Receive Date: 20131025
  Receipt Date: 20131220
  Transmission Date: 20140711
  Serious: Yes (Hospitalization)
  Sender: FDA-Public Use
  Company Number: DSM-2013-00979

PATIENT
  Age: 44 Year
  Sex: Male

DRUGS (1)
  1. VOCADO [Suspect]
     Indication: HYPERTENSION
     Dosage: 40/5 MG (1 IN 1 D) ORAL
     Dates: start: 2010

REACTIONS (1)
  - Priapism [None]
